FAERS Safety Report 6955906-6 (Version None)
Quarter: 2010Q3

REPORT INFORMATION
  Report Type: 
  Country: None (occurrence: None)
  Receive Date: 20100830
  Receipt Date: 20100819
  Transmission Date: 20110219
  Serious: Yes (Other)
  Sender: FDA-Public Use
  Company Number: DE-CVT-100533

PATIENT

DRUGS (6)
  1. RANEXA [Suspect]
     Indication: ANGINA PECTORIS
     Dosage: 750 MG, QD
     Route: 048
     Dates: start: 20100723, end: 20100805
  2. SIMVASTATIN [Suspect]
     Dosage: 40 MG, QD
     Route: 048
     Dates: start: 20100723
  3. ASPIRIN [Concomitant]
     Dates: start: 20100606
  4. CLOPIDOGREL                        /01220701/ [Concomitant]
     Dates: start: 20100606
  5. METOPROLOL SUCCINATE [Concomitant]
     Dates: start: 20100607
  6. RAMIPRIL                           /00885601/ [Concomitant]
     Dates: start: 20100607

REACTIONS (2)
  - DRUG INTERACTION [None]
  - HEPATITIS [None]
